FAERS Safety Report 7978259-3 (Version None)
Quarter: 2011Q4

REPORT INFORMATION
  Report Type: 
  Country: None (occurrence: None)
  Receive Date: 20111206
  Receipt Date: 20111124
  Transmission Date: 20120403
  Serious: Yes (Other)
  Sender: FDA-Public Use
  Company Number: 2011SP051182

PATIENT
  Age: 64 Year
  Sex: Male
  Weight: 76 kg

DRUGS (6)
  1. MOTILIUM [Concomitant]
  2. GASMOTIN [Concomitant]
  3. REBETOL [Suspect]
     Indication: HEPATITIS C
     Dosage: 300 MG;QD;PO
     Route: 048
     Dates: start: 20110608, end: 20111026
  4. PEG-INTRON [Suspect]
     Indication: HEPATITIS C
     Dosage: 60 MCG;QW;SC
     Route: 058
     Dates: start: 20110608, end: 20111012
  5. RABEPRAZOLE SODIUM [Concomitant]
  6. SELBEX [Concomitant]

REACTIONS (1)
  - ACUTE LEUKAEMIA [None]
